FAERS Safety Report 25650942 (Version 2)
Quarter: 2025Q4

REPORT INFORMATION
  Report Type: Spontaneous
  Country: US (occurrence: US)
  Receive Date: 20250806
  Receipt Date: 20251217
  Transmission Date: 20260117
  Serious: Yes (Hospitalization)
  Sender: ELI LILLY AND COMPANY
  Company Number: US-ELI_LILLY_AND_COMPANY-US202507026210

PATIENT
  Age: 69 Year
  Sex: Female

DRUGS (29)
  1. TRULICITY [Suspect]
     Active Substance: DULAGLUTIDE
     Indication: Product used for unknown indication
     Dosage: 0.75 MG, WEEKLY (1/W)
     Route: 065
     Dates: start: 20200716, end: 20220428
  2. TRULICITY [Suspect]
     Active Substance: DULAGLUTIDE
     Indication: Product used for unknown indication
     Dosage: 1.5 MG, WEEKLY (1/W)
     Route: 065
     Dates: start: 20220502, end: 20230721
  3. METFORMIN [Concomitant]
     Active Substance: METFORMIN HYDROCHLORIDE
     Indication: Product used for unknown indication
     Dosage: UNK
     Dates: start: 20240101
  4. TRADJENTA [Concomitant]
     Active Substance: LINAGLIPTIN
     Indication: Product used for unknown indication
     Dosage: UNK
     Dates: start: 20230101
  5. PIOGLITAZONE [Concomitant]
     Active Substance: PIOGLITAZONE
     Indication: Product used for unknown indication
     Dosage: UNK
     Dates: start: 20240101
  6. ACETAMINOPHEN\CODEINE PHOSPHATE [Concomitant]
     Active Substance: ACETAMINOPHEN\CODEINE PHOSPHATE
     Indication: Pain
     Dosage: UNK
     Dates: start: 20220118, end: 20220408
  7. FAMOTIDINE [Concomitant]
     Active Substance: FAMOTIDINE
     Indication: Gastrooesophageal reflux disease
     Dosage: UNK
     Dates: start: 20191216, end: 20220808
  8. FAMOTIDINE [Concomitant]
     Active Substance: FAMOTIDINE
     Indication: Dyspepsia
  9. OMEPRAZOLE [Concomitant]
     Active Substance: OMEPRAZOLE
     Indication: Gastrooesophageal reflux disease
     Dosage: UNK
     Dates: start: 20210612, end: 20220116
  10. PANTOPRAZOLE [Concomitant]
     Active Substance: PANTOPRAZOLE
     Indication: Gastrooesophageal reflux disease
     Dosage: UNK
     Dates: start: 20220926, end: 20240502
  11. ATORVASTATIN [Concomitant]
     Active Substance: ATORVASTATIN
     Indication: Hyperlipidaemia
  12. ATORVASTATIN [Concomitant]
     Active Substance: ATORVASTATIN
     Indication: Coronary artery disease
  13. BENAZEPRIL [Concomitant]
     Active Substance: BENAZEPRIL HYDROCHLORIDE
     Indication: Hypertension
     Dosage: UNK
     Dates: start: 20220510, end: 20231012
  14. NIFEDIPINE [Concomitant]
     Active Substance: NIFEDIPINE
     Indication: Hypertension
     Dosage: UNK
     Dates: start: 20220105, end: 20240423
  15. CLOPIDOGREL [Concomitant]
     Active Substance: CLOPIDOGREL BISULFATE
     Indication: Antiplatelet therapy
     Dosage: UNK
     Dates: start: 20220425, end: 20241109
  16. CILOSTAZOL [Concomitant]
     Active Substance: CILOSTAZOL
     Indication: Peripheral arterial occlusive disease
     Dosage: UNK
     Dates: start: 20230518, end: 20240502
  17. APIXABAN [Concomitant]
     Active Substance: APIXABAN
     Indication: Anticoagulation drug level therapeutic
     Dosage: UNK
     Dates: start: 20220418, end: 20220418
  18. TICAGRELOR [Concomitant]
     Active Substance: TICAGRELOR
     Indication: Antiplatelet therapy
     Dosage: UNK
     Dates: start: 20220118, end: 20220408
  19. DULOXETINE [Concomitant]
     Active Substance: DULOXETINE
     Indication: Anxiety
     Dosage: UNK
     Dates: start: 20220412, end: 20221222
  20. DULOXETINE [Concomitant]
     Active Substance: DULOXETINE
     Indication: Pain
  21. PREGABALIN [Concomitant]
     Active Substance: PREGABALIN
     Indication: Neuralgia
     Dosage: UNK
     Dates: start: 20220405, end: 20240125
  22. TIZANIDINE [Concomitant]
     Active Substance: TIZANIDINE
     Indication: Muscle spasms
     Dosage: UNK
     Dates: start: 20210718, end: 20231120
  23. LINAGLIPTIN [Concomitant]
     Active Substance: LINAGLIPTIN
     Indication: Type 2 diabetes mellitus
     Dosage: UNK
     Dates: start: 20230721, end: 20240502
  24. CHOLESTYRAMINE [Concomitant]
     Active Substance: CHOLESTYRAMINE
     Indication: Diarrhoea
     Dosage: UNK
     Dates: start: 20231120, end: 20231120
  25. HYDROXYZINE [Concomitant]
     Active Substance: HYDROXYZINE HYDROCHLORIDE
     Indication: Anxiety
     Dosage: UNK
     Dates: start: 20240417, end: 20240502
  26. METHOCARBAMOL [Concomitant]
     Active Substance: METHOCARBAMOL
     Indication: Muscle spasms
     Dosage: UNK
     Dates: start: 20240423, end: 20240423
  27. PRAMIPEXOLE [Concomitant]
     Active Substance: PRAMIPEXOLE
     Indication: Restless legs syndrome
     Dosage: UNK
     Dates: start: 20240502, end: 20240502
  28. PRAMIPEXOLE [Concomitant]
     Active Substance: PRAMIPEXOLE
     Indication: Parkinson^s disease
  29. MIRABEGRON [Concomitant]
     Active Substance: MIRABEGRON
     Indication: Hypertonic bladder
     Dosage: UNK
     Dates: start: 20240423, end: 20240502

REACTIONS (8)
  - Intestinal obstruction [Recovered/Resolved]
  - Ileus [Recovered/Resolved]
  - Impaired gastric emptying [Recovered/Resolved]
  - Vomiting [Recovered/Resolved]
  - Nausea [Recovered/Resolved]
  - Constipation [Recovered/Resolved]
  - Diarrhoea [Recovered/Resolved]
  - Abdominal pain [Recovered/Resolved]

NARRATIVE: CASE EVENT DATE: 20220701
